FAERS Safety Report 6706461-7 (Version None)
Quarter: 2010Q2

REPORT INFORMATION
  Report Type: 
  Country: None (occurrence: None)
  Receive Date: 20100503
  Receipt Date: 20081203
  Transmission Date: 20101027
  Serious: Yes (Other)
  Sender: FDA-Public Use
  Company Number: US-BAYER-200814751BCC

PATIENT
  Sex: Female
  Weight: 50 kg

DRUGS (5)
  1. ALEVE (CAPLET) [Suspect]
     Indication: SPINAL COLUMN STENOSIS
     Dosage: AS USED: 220 MG  UNIT DOSE: 220 MG
  2. ADVAIR DISKUS 100/50 [Concomitant]
  3. LISINOPRIL [Concomitant]
  4. EVISTA [Concomitant]
  5. BIOCETRIL [Concomitant]

REACTIONS (1)
  - SPINAL COLUMN STENOSIS [None]
